FAERS Safety Report 19879006 (Version 1)
Quarter: 2021Q3

REPORT INFORMATION
  Report Type: Report from Study
  Country: None (occurrence: AR)
  Receive Date: 20210924
  Receipt Date: 20210924
  Transmission Date: 20211014
  Serious: Yes (Other)
  Sender: FDA-Public Use
  Company Number: AR-ABBVIE-21K-007-4091864-00

PATIENT
  Age: 59 Year
  Sex: Female

DRUGS (1)
  1. HUMIRA [Suspect]
     Active Substance: ADALIMUMAB
     Indication: RHEUMATOID ARTHRITIS
     Route: 058
     Dates: start: 20191201

REACTIONS (4)
  - Swelling face [Unknown]
  - Salivary gland mass [Unknown]
  - Dry eye [Unknown]
  - Eye disorder [Unknown]

NARRATIVE: CASE EVENT DATE: 202108
